FAERS Safety Report 9121539 (Version 2)
Quarter: 2013Q1

REPORT INFORMATION
  Report Type: Spontaneous
  Country: US (occurrence: US)
  Receive Date: 20130227
  Receipt Date: 20130304
  Transmission Date: 20140127
  Serious: No
  Sender: FDA-Public Use
  Company Number: US-009507513-1302USA009552

PATIENT
  Age: 62 Year
  Sex: Female

DRUGS (12)
  1. JANUMET [Suspect]
     Indication: TYPE 2 DIABETES MELLITUS
     Dosage: 1000/50, BID
     Route: 048
     Dates: start: 201211
  2. JANUMET [Suspect]
     Dosage: 500/50, TAKEN 2 TABLETS ONCE DAILY
     Route: 048
  3. JANUMET [Suspect]
     Dosage: 1000/50, TABLETS TAKEN ONCE DAILY
     Route: 048
  4. LANTUS [Concomitant]
  5. ACTOPLUS MET [Concomitant]
  6. LIPITOR [Concomitant]
  7. PRANDIN (DEFLAZACORT) [Concomitant]
  8. AMLODIPINE [Concomitant]
  9. VITAMIN D (UNSPECIFIED) [Concomitant]
  10. CALCIUM (UNSPECIFIED) [Concomitant]
  11. MAGNESIUM (UNSPECIFIED) [Concomitant]
  12. VITAMIN E [Concomitant]

REACTIONS (4)
  - Diarrhoea [Unknown]
  - Headache [Unknown]
  - Vomiting [Unknown]
  - Drug dose omission [Unknown]
